FAERS Safety Report 8578081-3 (Version None)
Quarter: 2012Q3

REPORT INFORMATION
  Report Type: 
  Country: None (occurrence: None)
  Receive Date: 20120808
  Receipt Date: 20120807
  Transmission Date: 20120928
  Serious: Yes (Death, Other)
  Sender: FDA-Public Use
  Company Number: PHEH2008US00490

PATIENT
  Sex: Male

DRUGS (16)
  1. RISPERDAL [Concomitant]
     Dosage: 1 MG, QHS
     Route: 048
  2. CLINDAMYCIN [Concomitant]
     Dosage: 150 MG, QID
  3. ENABLEX [Concomitant]
     Dosage: 75 MG, QD
  4. PERIOSTAT [Concomitant]
     Dosage: 1 DF, BID
     Route: 048
  5. LANOXIN [Concomitant]
  6. LEVAQUIN [Concomitant]
  7. PERIDEX [Concomitant]
  8. ROXANOL [Concomitant]
     Dosage: 5 MG, Q4H
     Route: 048
  9. DIGOXIN [Concomitant]
     Dosage: 0.125 MG, QD
     Route: 048
  10. ASPIRIN [Concomitant]
  11. COLACE [Concomitant]
     Dosage: 100 MG, BID
  12. LEXAPRO [Concomitant]
     Dosage: 10 MG, QD
  13. VASOTEC [Concomitant]
     Dosage: 5 MG, QD
  14. MAG-OX [Concomitant]
     Dosage: 400 MG, QD
  15. METHADONE HYDROCHLORIDE [Concomitant]
     Dosage: UNK UKN, BID
  16. ZOMETA [Suspect]
     Dosage: 4 MG, QMO
     Route: 042

REACTIONS (52)
  - URINARY TRACT INFECTION [None]
  - MYOCARDIAL ISCHAEMIA [None]
  - ACUTE PRERENAL FAILURE [None]
  - MITRAL VALVE PROLAPSE [None]
  - GINGIVAL BLEEDING [None]
  - SEBORRHOEIC KERATOSIS [None]
  - ACROCHORDON [None]
  - MULTIPLE INJURIES [None]
  - NEPHROLITHIASIS [None]
  - NEUROPATHY PERIPHERAL [None]
  - URINARY RETENTION [None]
  - SINUS ARRHYTHMIA [None]
  - HALLUCINATION, VISUAL [None]
  - ANHEDONIA [None]
  - BACK PAIN [None]
  - EXPOSED BONE IN JAW [None]
  - CEREBRAL HAEMORRHAGE [None]
  - CARDIAC FAILURE CONGESTIVE [None]
  - SYNCOPE [None]
  - COMPRESSION FRACTURE [None]
  - CORONARY ARTERY DISEASE [None]
  - CAROTID ARTERY DISEASE [None]
  - URINARY INCONTINENCE [None]
  - PNEUMOTHORAX [None]
  - LUMBAR RADICULOPATHY [None]
  - BLADDER OUTLET OBSTRUCTION [None]
  - GOUT [None]
  - BRAIN INJURY [None]
  - ATELECTASIS [None]
  - MASTICATION DISORDER [None]
  - UPPER RESPIRATORY TRACT INFECTION [None]
  - SPINAL OSTEOARTHRITIS [None]
  - TOOTH EXTRACTION [None]
  - POLLAKIURIA [None]
  - ANAEMIA [None]
  - HYPOALBUMINAEMIA [None]
  - MALNUTRITION [None]
  - PLEURAL EFFUSION [None]
  - LEFT VENTRICULAR HYPERTROPHY [None]
  - OSTEONECROSIS OF JAW [None]
  - FALL [None]
  - DYSPHAGIA [None]
  - METASTASES TO BONE [None]
  - OSTEOMYELITIS [None]
  - ENCEPHALOPATHY [None]
  - ANXIETY [None]
  - DIABETES MELLITUS [None]
  - HYPERLIPIDAEMIA [None]
  - AORTIC ANEURYSM [None]
  - HYPONATRAEMIA [None]
  - ATRIAL FIBRILLATION [None]
  - DELUSION [None]
